FAERS Safety Report 12134831 (Version 1)
Quarter: 2016Q1

REPORT INFORMATION
  Report Type: Spontaneous
  Country: BR (occurrence: BR)
  Receive Date: 20160301
  Receipt Date: 20160301
  Transmission Date: 20160526
  Serious: Yes (Hospitalization)
  Sender: FDA-Public Use
  Company Number: BR-PFIZER INC-2010152116

PATIENT
  Age: 23 Year
  Sex: Female
  Weight: 47 kg

DRUGS (6)
  1. DIPIRONE [Concomitant]
     Active Substance: METAMIZOLE SODIUM
     Dosage: UNK
  2. EVANOR [Suspect]
     Active Substance: ETHINYL ESTRADIOL\LEVONORGESTREL
     Dosage: 1 DF, 1X/DAY(LEVONORGESTREL 0.25MG / ETHINYL ESTRADIOL 0.05MG)
     Route: 048
     Dates: start: 201011
  3. EVANOR [Suspect]
     Active Substance: ETHINYL ESTRADIOL\LEVONORGESTREL
     Indication: CONTRACEPTION
     Dosage: 1 DF, 1X/DAY(LEVONORGESTREL 0.25MG / ETHINYL ESTRADIOL 0.05MG)
     Route: 048
     Dates: start: 2006
  4. PROMETAZOL [Suspect]
     Active Substance: PROMETHAZINE HYDROCHLORIDE
     Indication: ANXIETY
  5. PROMETAZOL [Suspect]
     Active Substance: PROMETHAZINE HYDROCHLORIDE
     Indication: DEPRESSION
     Dosage: UNK
     Dates: start: 201012
  6. PARACETAMOL [Concomitant]
     Active Substance: ACETAMINOPHEN
     Dosage: UNK

REACTIONS (13)
  - Abdominal distension [Not Recovered/Not Resolved]
  - Nipple swelling [Not Recovered/Not Resolved]
  - Retching [Unknown]
  - Somatic symptom disorder of pregnancy [Not Recovered/Not Resolved]
  - Dizziness [Not Recovered/Not Resolved]
  - Anxiety [Unknown]
  - Abdominal discomfort [Not Recovered/Not Resolved]
  - Discomfort [Not Recovered/Not Resolved]
  - Weight increased [Unknown]
  - Breast enlargement [Unknown]
  - Incorrect dose administered [Unknown]
  - Psychiatric symptom [Unknown]
  - Depression [Unknown]

NARRATIVE: CASE EVENT DATE: 201009
